FAERS Safety Report 6143404-1 (Version None)
Quarter: 2009Q2

REPORT INFORMATION
  Report Type: 
  Country: None (occurrence: None)
  Receive Date: 20090401
  Receipt Date: 20090323
  Transmission Date: 20091009
  Serious: Yes (Hospitalization)
  Sender: FDA-Public Use
  Company Number: KV200900367

PATIENT
  Age: 58 Year
  Sex: Male

DRUGS (8)
  1. ISOSORBIDE MONONITRATE [Suspect]
     Indication: DRUG USE FOR UNKNOWN INDICATION
     Dosage: ORAL
     Route: 048
  2. METOPROLOL SUCCINATE [Suspect]
     Indication: HYPERTENSION
     Dosage: ORAL
     Route: 048
  3. CLONIDINE [Concomitant]
  4. LISINOPRIL [Concomitant]
  5. CRESTOR [Concomitant]
  6. LANTUS [Concomitant]
  7. HUMALOG /00030501/ (INSULIN) [Concomitant]
  8. DIURETCIS [Concomitant]

REACTIONS (7)
  - CELLULITIS [None]
  - COLITIS [None]
  - HAEMODIALYSIS [None]
  - LOSS OF CONSCIOUSNESS [None]
  - PRODUCT QUALITY ISSUE [None]
  - RENAL FAILURE ACUTE [None]
  - SYNCOPE [None]
